FAERS Safety Report 5347463-5 (Version None)
Quarter: 2007Q2

REPORT INFORMATION
  Report Type: 
  Country: None (occurrence: None)
  Receive Date: 20070604
  Receipt Date: 20070604
  Transmission Date: 20071010
  Serious: Yes (Life-Threatening)
  Sender: FDA-Public Use
  Company Number: None

PATIENT
  Age: 56 Year
  Sex: Female
  Weight: 63.5036 kg

DRUGS (1)
  1. CREST SENSITIVITY MAXIMUM STRENGTH PROCTOR AND GAMBLE [Suspect]
     Indication: SENSITIVITY OF TEETH
     Dosage: RIBBON OF TOOTHPASTE ON BRUSH 2X PO
     Route: 048
     Dates: start: 20060101, end: 20060401

REACTIONS (8)
  - DIARRHOEA [None]
  - DIZZINESS [None]
  - INFLUENZA LIKE ILLNESS [None]
  - NERVOUS SYSTEM DISORDER [None]
  - PHARMACEUTICAL PRODUCT COMPLAINT [None]
  - PYREXIA [None]
  - THERAPEUTIC PRODUCT CONTAMINATION [None]
  - VOMITING [None]
